FAERS Safety Report 17205732 (Version 1)
Quarter: 2019Q4

REPORT INFORMATION
  Report Type: Spontaneous
  Country: GB (occurrence: GB)
  Receive Date: 20191227
  Receipt Date: 20191227
  Transmission Date: 20200122
  Serious: Yes (Life-Threatening, Hospitalization)
  Sender: FDA-Public Use
  Company Number: GB-TEVA-2019-GB-1157854

PATIENT
  Age: 75 Year
  Sex: Female
  Weight: 75 kg

DRUGS (11)
  1. LANSOPRAZOLE. [Suspect]
     Active Substance: LANSOPRAZOLE
     Indication: PROPHYLAXIS
     Dosage: 15 MG
     Route: 048
     Dates: start: 20191021, end: 20191030
  2. RANITIDINE. [Concomitant]
     Active Substance: RANITIDINE
     Indication: GASTRIC PH DECREASED
     Dates: start: 20190808, end: 20191021
  3. DOCUSATE SODIUM. [Concomitant]
     Active Substance: DOCUSATE SODIUM
     Indication: CONSTIPATION
     Dosage: 4 DF
     Dates: start: 20190808
  4. PREDNISOLONE. [Concomitant]
     Active Substance: PREDNISOLONE
     Dosage: 1 DF
     Dates: start: 20190808
  5. CALCIUM ACETATE. [Concomitant]
     Active Substance: CALCIUM ACETATE
     Indication: MINERAL SUPPLEMENTATION
     Dosage: 3 DF
     Dates: start: 20190808
  6. ADOPORT [Concomitant]
     Active Substance: TACROLIMUS
     Dosage: 2 DF
     Dates: start: 20190225
  7. FUROSEMIDE. [Concomitant]
     Active Substance: FUROSEMIDE
     Indication: DIURETIC THERAPY
     Dosage: 1 DOSAGE FORMS DAILY; TAKE EACH MORNING
     Dates: start: 20190808
  8. SIMVASTATIN. [Concomitant]
     Active Substance: SIMVASTATIN
     Indication: BLOOD CHOLESTEROL INCREASED
     Dosage: TO BE TAKEN AT NIGHT
     Dates: start: 20190808
  9. ARANESP [Concomitant]
     Active Substance: DARBEPOETIN ALFA
     Indication: HAEMOGLOBIN DECREASED
     Dosage: SYRINGE
     Dates: start: 20171127
  10. RAMIPRIL. [Concomitant]
     Active Substance: RAMIPRIL
     Indication: HYPERTENSION
     Dosage: 1 DOSAGE FORMS DAILY; TAKE EVERY MORNING
     Dates: start: 20191121
  11. AMLODIPINE [Concomitant]
     Active Substance: AMLODIPINE BESYLATE
     Indication: HYPERTENSION
     Dosage: 1 DOSAGE FORMS DAILY; TAKE EVERY MORNING
     Dates: start: 20190808

REACTIONS (3)
  - Pemphigoid [Recovering/Resolving]
  - Rash vesicular [Unknown]
  - Erythema [Unknown]

NARRATIVE: CASE EVENT DATE: 20191030
